FAERS Safety Report 5376261-1 (Version None)
Quarter: 2007Q3

REPORT INFORMATION
  Report Type: 
  Country: None (occurrence: None)
  Receive Date: 20070702
  Receipt Date: 20070620
  Transmission Date: 20080115
  Serious: Yes (Hospitalization)
  Sender: FDA-Public Use
  Company Number: FR-ROCHE-503780

PATIENT
  Age: 36 Year
  Sex: Female

DRUGS (4)
  1. CELLCEPT [Suspect]
     Route: 065
     Dates: start: 20060523
  2. MIMPARA [Concomitant]
     Indication: HYPERPARATHYROIDISM
  3. CORTANCYL [Concomitant]
  4. PROGRAF [Concomitant]
     Dates: start: 20060523

REACTIONS (2)
  - NODULAR REGENERATIVE HYPERPLASIA [None]
  - OESOPHAGITIS [None]
